FAERS Safety Report 9428725 (Version 1)
Quarter: 2013Q3

REPORT INFORMATION
  Report Type: Spontaneous
  Country: US (occurrence: US)
  Receive Date: 20130730
  Receipt Date: 20130730
  Transmission Date: 20140515
  Serious: No
  Sender: FDA-Public Use
  Company Number: US-ABBOTT-12P-163-1027892-00

PATIENT
  Age: 71 Year
  Sex: Male
  Weight: 102.15 kg

DRUGS (13)
  1. NIASPAN [Suspect]
     Indication: HIGH DENSITY LIPOPROTEIN DECREASED
     Dosage: AT BEDTIME
     Dates: start: 20101119
  2. BABY ASA [Concomitant]
     Indication: PRODUCT USED FOR UNKNOWN INDICATION
  3. PRILOSEC [Concomitant]
     Indication: PRODUCT USED FOR UNKNOWN INDICATION
  4. SIMVASTATIN [Concomitant]
     Indication: BLOOD CHOLESTEROL INCREASED
  5. POTASSIUM [Concomitant]
     Indication: MINERAL SUPPLEMENTATION
  6. MEGA 3 FISH OIL [Concomitant]
     Indication: PRODUCT USED FOR UNKNOWN INDICATION
  7. TOPROL XL [Concomitant]
     Indication: CARDIAC DISORDER
  8. HYDROCHLOROTHIAZIDE [Concomitant]
     Indication: PRODUCT USED FOR UNKNOWN INDICATION
  9. MULTIVITAMIN [Concomitant]
     Indication: VITAMIN SUPPLEMENTATION
  10. DICLOFENAC SODIUM [Concomitant]
     Indication: ARTHRITIS
  11. SIMPLY SLEEP [Concomitant]
     Indication: INSOMNIA
  12. VALLIUM [Concomitant]
     Indication: INSOMNIA
  13. GLUCOSAMINE CONDROITIN [Concomitant]
     Indication: ARTHRITIS

REACTIONS (2)
  - High density lipoprotein decreased [Not Recovered/Not Resolved]
  - Flushing [Not Recovered/Not Resolved]
